FAERS Safety Report 10028501 (Version 2)
Quarter: 2014Q1

REPORT INFORMATION
  Report Type: Spontaneous
  Country: US (occurrence: US)
  Receive Date: 20140321
  Receipt Date: 20140321
  Transmission Date: 20141002
  Serious: Yes (Hospitalization)
  Sender: FDA-Public Use
  Company Number: US-B.I. PHARMACEUTICALS,INC./RIDGEFIELD-2013-BI-27307BP

PATIENT
  Age: 71 Year
  Sex: Female
  Weight: 81.65 kg

DRUGS (18)
  1. PRADAXA [Suspect]
     Indication: ATRIAL FIBRILLATION
     Dosage: 300 MG
     Route: 048
     Dates: start: 201105, end: 20130127
  2. ASPIRIN [Concomitant]
     Route: 065
  3. METFORMIN [Concomitant]
     Indication: DIABETES MELLITUS
     Route: 065
     Dates: start: 201105, end: 201303
  4. LANTUS [Concomitant]
     Indication: DIABETES MELLITUS
     Route: 065
     Dates: start: 200408, end: 201304
  5. LIPITOR [Concomitant]
     Route: 065
     Dates: start: 201105, end: 201304
  6. METOPROLOL [Concomitant]
     Route: 065
     Dates: start: 201105, end: 201304
  7. OXYCODONE [Concomitant]
     Route: 065
     Dates: start: 201002, end: 201305
  8. LISINOPRIL [Concomitant]
     Route: 065
     Dates: start: 200308, end: 201304
  9. GABAPENTIN [Concomitant]
     Route: 065
     Dates: start: 200904, end: 201302
  10. SOTALOL [Concomitant]
     Route: 065
     Dates: start: 200612, end: 201304
  11. PAXIL [Concomitant]
     Route: 065
  12. NITROGLYCERIN [Concomitant]
     Route: 065
  13. ZOFRAN [Concomitant]
     Route: 065
  14. VITAMIN D3 [Concomitant]
     Route: 065
  15. FISH OIL [Concomitant]
     Route: 065
  16. VITAMIN C [Concomitant]
     Route: 065
  17. VITAMIN E [Concomitant]
     Route: 065
  18. MULTIVITAMIN [Concomitant]
     Route: 065

REACTIONS (3)
  - Upper gastrointestinal haemorrhage [Recovered/Resolved]
  - Anaemia [Unknown]
  - Coagulopathy [Unknown]
